FAERS Safety Report 20360155 (Version 1)
Quarter: 2022Q1

REPORT INFORMATION
  Report Type: Spontaneous
  Country: IT (occurrence: IT)
  Receive Date: 20220121
  Receipt Date: 20220121
  Transmission Date: 20220424
  Serious: Yes (Other)
  Sender: FDA-Public Use
  Company Number: IT-SUN PHARMACEUTICAL INDUSTRIES LTD-2022RR-324344

PATIENT
  Age: 90 Year
  Sex: Male

DRUGS (2)
  1. SONIDEGIB [Suspect]
     Active Substance: SONIDEGIB
     Indication: Basal cell carcinoma
     Dosage: 200 MILLIGRAM, DAILY
     Route: 065
  2. SONIDEGIB [Suspect]
     Active Substance: SONIDEGIB
     Dosage: 200 MILLIGRAM, QOD
     Route: 065

REACTIONS (4)
  - Off label use [Unknown]
  - Muscle spasms [Unknown]
  - Blood creatine phosphokinase increased [Recovered/Resolved]
  - Therapeutic response unexpected [Unknown]
